FAERS Safety Report 23242349 (Version 1)
Quarter: 2023Q4

REPORT INFORMATION
  Report Type: Spontaneous
  Country: NZ (occurrence: NZ)
  Receive Date: 20231129
  Receipt Date: 20231129
  Transmission Date: 20240109
  Serious: Yes (Other)
  Sender: FDA-Public Use
  Company Number: NZ-NALPROPION PHARMACEUTICALS INC.-NZ-2023CUR004952

PATIENT
  Age: 54 Year
  Sex: Female
  Weight: 76 kg

DRUGS (1)
  1. CONTRAVE [Suspect]
     Active Substance: BUPROPION HYDROCHLORIDE\NALTREXONE HYDROCHLORIDE
     Indication: Product used for unknown indication
     Dosage: UNK, 1 DOSE IN TOTAL
     Route: 065
     Dates: start: 20231115, end: 20231115

REACTIONS (3)
  - Unresponsive to stimuli [Recovered/Resolved]
  - Hypoaesthesia [Recovered/Resolved]
  - Decreased activity [Recovered/Resolved]

NARRATIVE: CASE EVENT DATE: 20231115
